FAERS Safety Report 16998657 (Version 7)
Quarter: 2021Q1

REPORT INFORMATION
  Report Type: Report from Study
  Country: CA (occurrence: CA)
  Receive Date: 20191105
  Receipt Date: 20210104
  Transmission Date: 20210419
  Serious: Yes (Hospitalization, Other)
  Sender: FDA-Public Use
  Company Number: PHHY2013CA054029

PATIENT
  Age: 47 Year
  Sex: Female

DRUGS (12)
  1. SANDOSTATIN LAR DEPOT [Suspect]
     Active Substance: OCTREOTIDE ACETATE
     Indication: ACROMEGALY
     Dosage: 30 MG, QMO (EVERY 4 WEEKS)
     Route: 030
     Dates: start: 20130425, end: 20130815
  2. SANDOSTATIN LAR DEPOT [Suspect]
     Active Substance: OCTREOTIDE ACETATE
     Dosage: 30 MG, EVERY 3 WEEKS
     Route: 030
     Dates: start: 20140520
  3. SANDOSTATIN LAR DEPOT [Suspect]
     Active Substance: OCTREOTIDE ACETATE
     Dosage: 20 MG, QMO (EVERY 4 WEEKS)
     Route: 030
     Dates: start: 20151118
  4. SANDOSTATIN LAR DEPOT [Suspect]
     Active Substance: OCTREOTIDE ACETATE
     Dosage: 20 MG, QMO
     Route: 030
     Dates: start: 20171218
  5. SANDOSTATIN [Suspect]
     Active Substance: OCTREOTIDE ACETATE
     Indication: ACROMEGALY
     Dosage: 50 UG, TID
     Route: 058
     Dates: start: 20130326, end: 2013
  6. SANDOSTATIN [Suspect]
     Active Substance: OCTREOTIDE ACETATE
  7. SANDOSTATIN LAR DEPOT [Suspect]
     Active Substance: OCTREOTIDE ACETATE
     Dosage: 30 MG, QMO
     Route: 030
  8. CLINDAMYCIN. [Suspect]
     Active Substance: CLINDAMYCIN
     Indication: TOOTH ABSCESS
     Dosage: UNK
     Route: 065
  9. SANDOSTATIN LAR DEPOT [Suspect]
     Active Substance: OCTREOTIDE ACETATE
     Indication: PSORIASIS
     Dosage: 30 MG, EVERY 3 WEEKS
     Route: 030
     Dates: start: 20130816, end: 20131007
  10. SANDOSTATIN LAR DEPOT [Suspect]
     Active Substance: OCTREOTIDE ACETATE
     Dosage: 20 MG, QMO (EVERY 4 WEEKS)
     Route: 030
     Dates: start: 20141008, end: 20150426
  11. SANDOSTATIN LAR DEPOT [Suspect]
     Active Substance: OCTREOTIDE ACETATE
     Dosage: 10 MG, QMO (EVERY 4 WEEKS)
     Route: 030
     Dates: start: 20150427, end: 20151014
  12. SANDOSTATIN [Suspect]
     Active Substance: OCTREOTIDE ACETATE

REACTIONS (57)
  - Glaucoma [Unknown]
  - Hypothyroidism [Unknown]
  - Gait disturbance [Unknown]
  - Nasopharyngitis [Unknown]
  - Muscular weakness [Unknown]
  - Heart rate decreased [Unknown]
  - Constipation [Unknown]
  - Arthritis [Unknown]
  - Abdominal pain lower [Unknown]
  - Anxiety [Unknown]
  - Arthropathy [Unknown]
  - Faeces hard [Unknown]
  - Migraine [Unknown]
  - Peripheral swelling [Unknown]
  - Bowel movement irregularity [Unknown]
  - Back pain [Unknown]
  - Dyspepsia [Unknown]
  - Astigmatism [Unknown]
  - Visual impairment [Unknown]
  - Muscle spasms [Unknown]
  - Taste disorder [Unknown]
  - Injection site mass [Not Recovered/Not Resolved]
  - Vomiting [Unknown]
  - Pain [Not Recovered/Not Resolved]
  - Chromaturia [Unknown]
  - Pruritus [Unknown]
  - Dehydration [Unknown]
  - Headache [Unknown]
  - Dyspnoea [Unknown]
  - Abdominal pain upper [Unknown]
  - Bartholinitis [Unknown]
  - Hyperthyroidism [Unknown]
  - Depressed mood [Unknown]
  - Hypokinesia [Unknown]
  - Oedema peripheral [Unknown]
  - Inflammation [Not Recovered/Not Resolved]
  - Anaemia [Not Recovered/Not Resolved]
  - Hypotension [Unknown]
  - Arthralgia [Unknown]
  - Fatigue [Unknown]
  - Asthenia [Unknown]
  - Inappropriate schedule of product administration [Unknown]
  - Tooth abscess [Unknown]
  - Depression [Unknown]
  - Balance disorder [Unknown]
  - Acne [Unknown]
  - Allergy to animal [Unknown]
  - Injection site pain [Unknown]
  - Dizziness [Unknown]
  - Joint swelling [Unknown]
  - Fluid retention [Unknown]
  - Fall [Unknown]
  - Limb discomfort [Not Recovered/Not Resolved]
  - Thyroid disorder [Unknown]
  - Alopecia [Unknown]
  - Abdominal distension [Not Recovered/Not Resolved]
  - Injection site inflammation [Unknown]

NARRATIVE: CASE EVENT DATE: 20130813
